FAERS Safety Report 12832347 (Version 3)
Quarter: 2021Q1

REPORT INFORMATION
  Report Type: Spontaneous
  Country: US (occurrence: US)
  Receive Date: 20161010
  Receipt Date: 20210223
  Transmission Date: 20210419
  Serious: No
  Sender: FDA-Public Use
  Company Number: US-JAZZ-2016-US-013012

PATIENT
  Sex: Female

DRUGS (43)
  1. XYREM [Suspect]
     Active Substance: SODIUM OXYBATE
     Indication: CATAPLEXY
     Dosage: DOSE ADJUSTMENTS
     Route: 048
     Dates: start: 201507, end: 201606
  2. TOPAMAX [Concomitant]
     Active Substance: TOPIRAMATE
  3. LORATADINE. [Concomitant]
     Active Substance: LORATADINE
  4. TRAMADOL HCL [Concomitant]
     Active Substance: TRAMADOL HYDROCHLORIDE
  5. HYOSCYAMINE. [Concomitant]
     Active Substance: HYOSCYAMINE
  6. ASPIRIN [ACETYLSALICYLIC ACID] [Concomitant]
     Active Substance: ASPIRIN
  7. NAPROXEN. [Concomitant]
     Active Substance: NAPROXEN
  8. CEPHALEXIN [CEFALEXIN] [Concomitant]
     Active Substance: CEPHALEXIN
  9. REQUIP [Concomitant]
     Active Substance: ROPINIROLE HYDROCHLORIDE
  10. ALBUTEROL SULFATE. [Concomitant]
     Active Substance: ALBUTEROL SULFATE
  11. GABAPENTIN. [Concomitant]
     Active Substance: GABAPENTIN
  12. MIRAPEX [Concomitant]
     Active Substance: PRAMIPEXOLE DIHYDROCHLORIDE
  13. NUVIGIL [Concomitant]
     Active Substance: ARMODAFINIL
  14. MEDROL [Concomitant]
     Active Substance: METHYLPREDNISOLONE
  15. ADDERALL [Concomitant]
     Active Substance: AMPHETAMINE ASPARTATE\AMPHETAMINE SULFATE\DEXTROAMPHETAMINE SACCHARATE\DEXTROAMPHETAMINE SULFATE
  16. PROMETHAZINE [Concomitant]
     Active Substance: PROMETHAZINE HYDROCHLORIDE
  17. CLONIDINE HCL [Concomitant]
     Active Substance: CLONIDINE HYDROCHLORIDE
  18. XYREM [Suspect]
     Active Substance: SODIUM OXYBATE
     Dosage: 3.5 GRAM, BID
     Route: 048
     Dates: start: 201606
  19. MELOXICAM. [Concomitant]
     Active Substance: MELOXICAM
  20. FLEXERIL [Concomitant]
     Active Substance: CYCLOBENZAPRINE HYDROCHLORIDE
  21. FLOVENT HFA [Concomitant]
     Active Substance: FLUTICASONE PROPIONATE
  22. DULOXETINE HCL [Concomitant]
     Active Substance: DULOXETINE HYDROCHLORIDE
  23. NORVASC [Concomitant]
     Active Substance: AMLODIPINE BESYLATE
  24. XYREM [Suspect]
     Active Substance: SODIUM OXYBATE
     Dosage: 4 GRAM, BID
     Route: 048
  25. ADVAIR HFA [Concomitant]
     Active Substance: FLUTICASONE PROPIONATE\SALMETEROL XINAFOATE
  26. HORIZANT [Concomitant]
     Active Substance: GABAPENTIN ENACARBIL
  27. CLARITIN [Concomitant]
     Active Substance: LORATADINE
  28. DIOVAN [Concomitant]
     Active Substance: VALSARTAN
  29. CYCLOBENZAPRINE. [Concomitant]
     Active Substance: CYCLOBENZAPRINE
  30. VENTOLIN HFA [Concomitant]
     Active Substance: ALBUTEROL SULFATE
  31. CLOBETASOL [CLOBETASOL PROPIONATE] [Concomitant]
  32. OMEPRAZOLE. [Concomitant]
     Active Substance: OMEPRAZOLE
  33. SIMVASTATIN. [Concomitant]
     Active Substance: SIMVASTATIN
  34. XYREM [Suspect]
     Active Substance: SODIUM OXYBATE
     Indication: NARCOLEPSY
     Dosage: 2.25 GRAM, BID
     Route: 048
     Dates: start: 201507, end: 201507
  35. CHANTIX [Concomitant]
     Active Substance: VARENICLINE TARTRATE
  36. TYLENOL EXTRA STRENGTH [Concomitant]
     Active Substance: ACETAMINOPHEN
  37. DICYCLOMINE [DICYCLOVERINE HYDROCHLORIDE] [Concomitant]
     Active Substance: DICYCLOMINE HYDROCHLORIDE
  38. FLUTICASONE PROPIONATE. [Concomitant]
     Active Substance: FLUTICASONE PROPIONATE
  39. KLONOPIN [Concomitant]
     Active Substance: CLONAZEPAM
  40. LOMOTIL [LOPERAMIDE HYDROCHLORIDE] [Concomitant]
     Active Substance: LOPERAMIDE HYDROCHLORIDE
  41. PREMARIN [Concomitant]
     Active Substance: ESTROGENS, CONJUGATED
  42. PROPRANOLOL [Concomitant]
     Active Substance: PROPRANOLOL HYDROCHLORIDE
  43. SPIRONOLACTONE. [Concomitant]
     Active Substance: SPIRONOLACTONE

REACTIONS (4)
  - Influenza [Recovering/Resolving]
  - Pain [Unknown]
  - Asthma [Not Recovered/Not Resolved]
  - Hepatic enzyme abnormal [Not Recovered/Not Resolved]
